FAERS Safety Report 10589989 (Version 1)
Quarter: 2014Q4

REPORT INFORMATION
  Report Type: Spontaneous
  Country: US (occurrence: None)
  Receive Date: 20141117
  Receipt Date: 20141117
  Transmission Date: 20150529
  Serious: Yes (Disabling)
  Sender: FDA-Public Use
  Company Number: None

PATIENT
  Age: 16 Year
  Sex: Female
  Weight: 55.79 kg

DRUGS (1)
  1. LAMICTAL [Suspect]
     Active Substance: LAMOTRIGINE
     Indication: AFFECTIVE DISORDER
     Route: 048
     Dates: start: 20141031, end: 20141112

REACTIONS (5)
  - Swelling [None]
  - Pruritus [None]
  - Erythema [None]
  - Pain [None]
  - Rash [None]

NARRATIVE: CASE EVENT DATE: 20141104
